FAERS Safety Report 23222404 (Version 4)
Quarter: 2024Q1

REPORT INFORMATION
  Report Type: Spontaneous
  Country: NO (occurrence: NO)
  Receive Date: 20231123
  Receipt Date: 20240223
  Transmission Date: 20240410
  Serious: Yes (Other)
  Sender: FDA-Public Use
  Company Number: NO-BRISTOL-MYERS SQUIBB COMPANY-2023-168216

PATIENT
  Sex: Male

DRUGS (2)
  1. ELIQUIS [Suspect]
     Active Substance: APIXABAN
     Indication: Deep vein thrombosis
     Dosage: 20 TABLETS
     Route: 048
     Dates: start: 20210428
  2. ATORVASTATIN [Concomitant]
     Active Substance: ATORVASTATIN
     Indication: Low density lipoprotein increased
     Dates: start: 2023

REACTIONS (2)
  - Pulmonary embolism [Unknown]
  - Prescribed underdose [Unknown]
